FAERS Safety Report 10471646 (Version 1)
Quarter: 2014Q3

REPORT INFORMATION
  Report Type: Spontaneous
  Country: CN (occurrence: CN)
  Receive Date: 20140923
  Receipt Date: 20140923
  Transmission Date: 20150326
  Serious: Yes (Hospitalization, Other)
  Sender: FDA-Public Use
  Company Number: CN-GILEAD-2014-0115653

PATIENT
  Age: 43 Year
  Sex: Male

DRUGS (4)
  1. RABEPRAZOLE [Concomitant]
     Active Substance: RABEPRAZOLE
     Indication: GASTRIC ULCER HAEMORRHAGE
     Dosage: UNK
     Route: 065
     Dates: start: 201210
  2. ENTECAVIR [Concomitant]
     Active Substance: ENTECAVIR
     Indication: HEPATITIS B
     Route: 065
  3. ADEFOVIR DIPIVOXIL. [Suspect]
     Active Substance: ADEFOVIR DIPIVOXIL
     Indication: HEPATITIS B
     Dosage: 10 MG, QD
     Route: 065
     Dates: end: 2009
  4. LAMIVUDINE. [Concomitant]
     Active Substance: LAMIVUDINE
     Indication: HEPATITIS B
     Dosage: 100 MG, UNK
     Route: 065
     Dates: start: 2001

REACTIONS (12)
  - Splenomegaly [Unknown]
  - Bone lesion [Unknown]
  - Hepatic cirrhosis [Unknown]
  - Cholelithiasis [Unknown]
  - Metabolic disorder [Unknown]
  - Gastric ulcer haemorrhage [Unknown]
  - Fanconi syndrome acquired [Recovering/Resolving]
  - Osteoporosis [Unknown]
  - Bone pain [Unknown]
  - Leukopenia [Unknown]
  - Back pain [Unknown]
  - Thrombocytopenia [Unknown]

NARRATIVE: CASE EVENT DATE: 201102
